FAERS Safety Report 5376148-4 (Version None)
Quarter: 2007Q2

REPORT INFORMATION
  Report Type: 
  Country: None (occurrence: None)
  Receive Date: 20070628
  Receipt Date: 20070628
  Transmission Date: 20071010
  Serious: Yes (Other)
  Sender: FDA-Public Use
  Company Number: None

PATIENT
  Age: 56 Year
  Sex: Male
  Weight: 100 kg

DRUGS (3)
  1. BEVACIZUMAB (GENENTECH) [Suspect]
     Indication: GLIOBLASTOMA
     Dosage: 10 MG/KG IV Q 2 WKS
     Route: 042
  2. IRINOTECAN HCL [Concomitant]
  3. ENOXAPARIN SODIUM [Concomitant]

REACTIONS (1)
  - HAEMORRHAGE [None]
